FAERS Safety Report 25863570 (Version 1)
Quarter: 2025Q3

REPORT INFORMATION
  Report Type: Spontaneous
  Country: US (occurrence: US)
  Receive Date: 20250930
  Receipt Date: 20250930
  Transmission Date: 20251020
  Serious: No
  Sender: GLAXOSMITHKLINE
  Company Number: US-GSK-US2025AMR099653

PATIENT
  Age: 77 Year
  Sex: Female

DRUGS (1)
  1. BENLYSTA [Suspect]
     Active Substance: BELIMUMAB
     Indication: Systemic lupus erythematosus
     Dosage: 200 MG, WE
     Dates: start: 202506

REACTIONS (11)
  - Joint swelling [Unknown]
  - Headache [Unknown]
  - Abdominal discomfort [Unknown]
  - Arthralgia [Unknown]
  - Joint stiffness [Unknown]
  - Fatigue [Unknown]
  - Blood pressure increased [Unknown]
  - Insomnia [Unknown]
  - Gingival bleeding [Unknown]
  - Pyrexia [Unknown]
  - Gait disturbance [Unknown]

NARRATIVE: CASE EVENT DATE: 20250720
